FAERS Safety Report 12854586 (Version 1)
Quarter: 2016Q4

REPORT INFORMATION
  Report Type: Spontaneous
  Country: GB (occurrence: GB)
  Receive Date: 20161017
  Receipt Date: 20161017
  Transmission Date: 20170207
  Serious: Yes (Other)
  Sender: FDA-Public Use
  Company Number: GB-B. BRAUN MEDICAL INC.-1058431

PATIENT
  Age: 71 Year
  Sex: Female

DRUGS (10)
  1. HYALURONATE SODIUM [Suspect]
     Active Substance: HYALURONATE SODIUM
     Route: 047
     Dates: start: 20070501, end: 20070501
  2. LIDOCAINE HYDROCHLORIDE AND DEXTROSE [Suspect]
     Active Substance: DEXTROSE\LIDOCAINE HYDROCHLORIDE
     Indication: EYE IRRIGATION
     Route: 047
     Dates: end: 20070504
  3. CHLORAMPHENICOL [Suspect]
     Active Substance: CHLORAMPHENICOL
     Route: 047
     Dates: start: 20070501, end: 20070501
  4. OCUFEN [Suspect]
     Active Substance: FLURBIPROFEN SODIUM
     Route: 047
     Dates: start: 20070501, end: 20070501
  5. POVIDONE-IODINE. [Suspect]
     Active Substance: POVIDONE-IODINE
     Route: 047
     Dates: start: 20070501, end: 20070501
  6. ADRENALINE [Suspect]
     Active Substance: EPINEPHRINE
     Route: 047
     Dates: start: 20070504, end: 20070504
  7. BETAMETHASONE. [Suspect]
     Active Substance: BETAMETHASONE
     Route: 047
     Dates: start: 20070501, end: 20070501
  8. PHENYLEPHRINE [Suspect]
     Active Substance: PHENYLEPHRINE\PHENYLEPHRINE HYDROCHLORIDE
     Route: 047
     Dates: start: 20070501, end: 20070501
  9. NEOMYCIN [Suspect]
     Active Substance: NEOMYCIN
     Route: 047
     Dates: start: 20070501, end: 20070501
  10. VANCOMYCIN [Suspect]
     Active Substance: VANCOMYCIN
     Route: 047
     Dates: start: 20070501, end: 20070501

REACTIONS (1)
  - Toxic anterior segment syndrome [Recovering/Resolving]

NARRATIVE: CASE EVENT DATE: 20070501
